FAERS Safety Report 9275630 (Version 1)
Quarter: 2013Q2

REPORT INFORMATION
  Report Type: Spontaneous
  Country: US (occurrence: None)
  Receive Date: 20130502
  Receipt Date: 20130502
  Transmission Date: 20140414
  Serious: Yes (Hospitalization)
  Sender: FDA-Public Use
  Company Number: None

PATIENT
  Age: 75 Year
  Sex: Female
  Weight: 57.61 kg

DRUGS (1)
  1. DABIGATRAN 75MG [Suspect]
     Indication: ATRIAL FIBRILLATION
     Dosage: 75MG  TWICE A DAY  PO
     Route: 048

REACTIONS (4)
  - Rectal haemorrhage [None]
  - Activated partial thromboplastin time prolonged [None]
  - Haemoglobin decreased [None]
  - Dialysis [None]
